FAERS Safety Report 21164856 (Version 4)
Quarter: 2022Q3

REPORT INFORMATION
  Report Type: Spontaneous
  Country: US (occurrence: US)
  Receive Date: 20220803
  Receipt Date: 20220929
  Transmission Date: 20221027
  Serious: No
  Sender: FDA-Public Use
  Company Number: US-PFIZER INC-202200996000

PATIENT
  Age: 11 Year
  Sex: Female
  Weight: 32.66 kg

DRUGS (1)
  1. GENOTROPIN [Suspect]
     Active Substance: SOMATROPIN
     Indication: Growth hormone deficiency
     Dosage: 2.8 MG, SIX NIGHTS OF THE WEEK
     Dates: start: 201710

REACTIONS (2)
  - Device use issue [Unknown]
  - Product dose omission issue [Unknown]

NARRATIVE: CASE EVENT DATE: 20220719
